FAERS Safety Report 7940690-X (Version None)
Quarter: 2011Q4

REPORT INFORMATION
  Report Type: 
  Country: None (occurrence: None)
  Receive Date: 20111128
  Receipt Date: 20111118
  Transmission Date: 20120403
  Serious: Yes (Hospitalization)
  Sender: FDA-Public Use
  Company Number: ES-JNJFOC-20100305895

PATIENT
  Age: 65 Year
  Sex: Female
  Weight: 95 kg

DRUGS (8)
  1. AMOXICILLIN AND CLAVULANATE POTASSIUM [Concomitant]
     Indication: ILL-DEFINED DISORDER
     Route: 065
     Dates: start: 20090407, end: 20090413
  2. DURAGESIC-100 [Suspect]
     Indication: BONE PAIN
     Route: 062
     Dates: start: 20070203, end: 20091023
  3. DURAGESIC-100 [Suspect]
     Route: 062
     Dates: start: 20091024, end: 20091201
  4. FUROSEMIDE [Concomitant]
     Indication: ILL-DEFINED DISORDER
     Route: 065
     Dates: start: 20090113
  5. PREDNISONE TAB [Concomitant]
     Indication: MULTIPLE MYELOMA
     Route: 065
     Dates: start: 20081209
  6. ARANESP [Suspect]
     Indication: ILL-DEFINED DISORDER
     Route: 065
     Dates: start: 20090413
  7. VELCADE [Concomitant]
     Indication: MULTIPLE MYELOMA
     Route: 065
     Dates: start: 20071221
  8. PREDNISONE TAB [Concomitant]
     Indication: PRODUCT USED FOR UNKNOWN INDICATION
     Route: 048
     Dates: start: 20090407, end: 20090413

REACTIONS (1)
  - ESCHERICHIA INFECTION [None]
